FAERS Safety Report 12306574 (Version 1)
Quarter: 2016Q2

REPORT INFORMATION
  Report Type: Spontaneous
  Country: CN (occurrence: CN)
  Receive Date: 20160426
  Receipt Date: 20160426
  Transmission Date: 20160815
  Serious: Yes (Other)
  Sender: FDA-Public Use
  Company Number: CN-009507513-1604CHN015203

PATIENT
  Age: 7 Year
  Sex: Female
  Weight: 40 kg

DRUGS (1)
  1. MONTELUKAST SODIUM. [Suspect]
     Active Substance: MONTELUKAST SODIUM
     Indication: ASTHMA
     Dosage: 4 MG, QD
     Route: 048
     Dates: start: 20150310, end: 20151110

REACTIONS (1)
  - Obesity [Recovered/Resolved with Sequelae]

NARRATIVE: CASE EVENT DATE: 20151110
